FAERS Safety Report 25431833 (Version 2)
Quarter: 2025Q2

REPORT INFORMATION
  Report Type: Report from Study
  Country: GB (occurrence: GB)
  Receive Date: 20250613
  Receipt Date: 20250628
  Transmission Date: 20250717
  Serious: Yes (Other)
  Sender: CELLTRION
  Company Number: GB-CELLTRION INC.-2025GB018146

PATIENT

DRUGS (1)
  1. INFLIXIMAB-DYYB [Suspect]
     Active Substance: INFLIXIMAB-DYYB
     Indication: Rheumatoid arthritis
     Dosage: 1 DF, Q2WEEKS (INJECT ONE PRE-FILLED PEN EVERY TWO WEEKS)
     Route: 058
     Dates: start: 202412

REACTIONS (5)
  - Thrombosis [Unknown]
  - Pain [Unknown]
  - Neoplasm malignant [Unknown]
  - Hernia [Unknown]
  - Intentional dose omission [Unknown]
